FAERS Safety Report 10626032 (Version 2)
Quarter: 2015Q1

REPORT INFORMATION
  Report Type: Report from Study
  Country: DE (occurrence: MX)
  Receive Date: 20141204
  Receipt Date: 20150309
  Transmission Date: 20150720
  Serious: Yes (Other)
  Sender: FDA-Public Use
  Company Number: DE-ACTELION-A-US2014-109146

PATIENT
  Age: 34 Year
  Sex: Female
  Weight: 95 kg

DRUGS (8)
  1. DIGOXIN. [Concomitant]
     Active Substance: DIGOXIN
  2. VENTAVIS [Suspect]
     Active Substance: ILOPROST
     Indication: PRODUCT USED FOR UNKNOWN INDICATION
     Dosage: 3 DF, QD
     Route: 055
     Dates: start: 201303
  3. SPIRONOLACTONE. [Concomitant]
     Active Substance: SPIRONOLACTONE
  4. OXYGEN. [Concomitant]
     Active Substance: OXYGEN
  5. XARELTO [Concomitant]
     Active Substance: RIVAROXABAN
  6. TADALAFIL [Concomitant]
     Active Substance: TADALAFIL
  7. TRACLEER [Concomitant]
     Active Substance: BOSENTAN\BOSENTAN MONOHYDRATE
     Indication: PULMONARY ARTERIAL HYPERTENSION
  8. VENTAVIS [Suspect]
     Active Substance: ILOPROST
     Dosage: 1 DF, BID
     Route: 055

REACTIONS (9)
  - Epistaxis [Not Recovered/Not Resolved]
  - Nasal dryness [Not Recovered/Not Resolved]
  - Rhinalgia [Unknown]
  - Dry throat [Not Recovered/Not Resolved]
  - Oropharyngeal pain [Unknown]
  - Burning sensation mucosal [Unknown]
  - Throat irritation [Unknown]
  - Pharyngeal haemorrhage [Not Recovered/Not Resolved]
  - Hypotension [Not Recovered/Not Resolved]

NARRATIVE: CASE EVENT DATE: 201308
